FAERS Safety Report 10423775 (Version 1)
Quarter: 2014Q3

REPORT INFORMATION
  Report Type: Spontaneous
  Country: US (occurrence: None)
  Receive Date: 20140722
  Receipt Date: 20140722
  Transmission Date: 20150326
  Serious: Yes (Other)
  Sender: FDA-Public Use
  Company Number: AEGR000507

PATIENT
  Age: 65 Year
  Sex: Female

DRUGS (6)
  1. LEVOXYL (LEVOTHYROXINE SODIUM) [Concomitant]
  2. ARIMIDEX [Concomitant]
     Active Substance: ANASTROZOLE
  3. JUXTAPID [Suspect]
     Active Substance: LOMITAPIDE MESYLATE
     Indication: TYPE IIA HYPERLIPIDAEMIA
     Route: 048
     Dates: start: 20140515, end: 20140529
  4. CRESTOR [Concomitant]
     Active Substance: ROSUVASTATIN CALCIUM
  5. ZETIA [Concomitant]
     Active Substance: EZETIMIBE
  6. CELEXA [Concomitant]
     Active Substance: CITALOPRAM HYDROBROMIDE

REACTIONS (3)
  - Flatulence [None]
  - Diarrhoea [None]
  - Abdominal distension [None]

NARRATIVE: CASE EVENT DATE: 201405
